FAERS Safety Report 9818421 (Version 1)
Quarter: 2014Q1

REPORT INFORMATION
  Report Type: Spontaneous
  Country: US (occurrence: US)
  Receive Date: 20140115
  Receipt Date: 20140115
  Transmission Date: 20141002
  Serious: Yes (Other)
  Sender: FDA-Public Use
  Company Number: US-SA-2014SA004749

PATIENT
  Sex: Male

DRUGS (2)
  1. AMBIEN [Suspect]
     Route: 065
  2. SILDENAFIL CITRATE [Suspect]
     Route: 065

REACTIONS (4)
  - Fall [Unknown]
  - Tooth fracture [Unknown]
  - Tooth disorder [Unknown]
  - Somnambulism [Unknown]
